FAERS Safety Report 10567357 (Version 4)
Quarter: 2014Q4

REPORT INFORMATION
  Report Type: Spontaneous
  Country: US (occurrence: US)
  Receive Date: 20141106
  Receipt Date: 20141201
  Transmission Date: 20150529
  Serious: Yes (Hospitalization, Other)
  Sender: FDA-Public Use
  Company Number: US-BEH-2014043873

PATIENT
  Age: 40 Year
  Sex: Female

DRUGS (31)
  1. DALIRESP [Concomitant]
     Active Substance: ROFLUMILAST
  2. SIMVASTATIN. [Concomitant]
     Active Substance: SIMVASTATIN
  3. RANITIDINE [Concomitant]
     Active Substance: RANITIDINE\RANITIDINE HYDROCHLORIDE
  4. QVAR MDI [Concomitant]
     Dosage: 1 PUFF
  5. GENERESS FE [Concomitant]
     Active Substance: ETHINYL ESTRADIOL\FERROUS FUMARATE\NORETHINDRONE
     Dosage: 0.8 MG/25 MCG
  6. PLAQUENIL [Concomitant]
     Active Substance: HYDROXYCHLOROQUINE SULFATE
  7. ZONISAMIDE. [Concomitant]
     Active Substance: ZONISAMIDE
  8. PANTOPRAZOLE [Concomitant]
     Active Substance: PANTOPRAZOLE SODIUM
  9. XOPENEX MDI [Concomitant]
     Dosage: 2 PUFFS
  10. DULOXETINE [Concomitant]
     Active Substance: DULOXETINE
  11. SPIRIVA [Concomitant]
     Active Substance: TIOTROPIUM BROMIDE MONOHYDRATE
  12. SULFAZINE [Concomitant]
     Active Substance: SULFASALAZINE
  13. DILTIAZEM XR [Concomitant]
     Active Substance: DILTIAZEM
  14. COMBIVENT MDI [Concomitant]
     Dosage: 20 MCG/100 MCG; 2 PUFFS
  15. DULERA MDI [Concomitant]
     Dosage: 200 MCG/5 MCG; 2 PUFFS
  16. ASPIRIN. [Concomitant]
     Active Substance: ASPIRIN
  17. IPATROPIUM BROMIDE [Concomitant]
     Route: 055
  18. CALCIUM [Concomitant]
     Active Substance: CALCIUM
  19. MECLIZINE [Concomitant]
     Active Substance: MECLIZINE\MECLIZINE HYDROCHLORIDE
  20. ZYRTEC [Concomitant]
     Active Substance: CETIRIZINE HYDROCHLORIDE
  21. HIZENTRA [Suspect]
     Active Substance: HUMAN IMMUNOGLOBULIN G
     Indication: IMMUNODEFICIENCY COMMON VARIABLE
     Dosage: PER 50 CC^S
     Route: 058
     Dates: start: 20140626
  22. VOLTAREN [Concomitant]
     Active Substance: DICLOFENAC SODIUM
  23. VOLTAREN [Concomitant]
     Active Substance: DICLOFENAC SODIUM
     Dosage: 1% GEL
     Route: 061
  24. MULTIVITAMIN [Concomitant]
     Active Substance: VITAMINS
  25. ALBUTEROL SULFATE. [Concomitant]
     Active Substance: ALBUTEROL SULFATE
     Route: 055
  26. XOPENEX [Concomitant]
     Active Substance: LEVALBUTEROL HYDROCHLORIDE
     Route: 055
  27. FERROUS SULFATE [Concomitant]
     Active Substance: FERROUS SULFATE\FERROUS SULFATE, DRIED
  28. HIZENTRA [Suspect]
     Active Substance: HUMAN IMMUNOGLOBULIN G
     Indication: HYPOGAMMAGLOBULINAEMIA
     Dosage: PER 50 CC^S
     Route: 058
     Dates: start: 20140626
  29. SINGULAIR [Concomitant]
     Active Substance: MONTELUKAST SODIUM
  30. FISH OIL [Concomitant]
     Active Substance: FISH OIL
     Dosage: 2 TABS
  31. VITAMIN D [Concomitant]
     Active Substance: CHOLECALCIFEROL

REACTIONS (9)
  - Asthma [Recovering/Resolving]
  - Vaginal haemorrhage [Recovering/Resolving]
  - Palpitations [Recovering/Resolving]
  - Infusion site erythema [Recovering/Resolving]
  - Infusion site pain [Recovering/Resolving]
  - Surgery [Recovering/Resolving]
  - Infusion site pruritus [Recovering/Resolving]
  - Administration site reaction [Recovering/Resolving]
  - Adverse drug reaction [Recovering/Resolving]

NARRATIVE: CASE EVENT DATE: 20140822
